FAERS Safety Report 9284334 (Version 2)
Quarter: 2013Q2

REPORT INFORMATION
  Report Type: Spontaneous
  Country: US (occurrence: US)
  Receive Date: 20130510
  Receipt Date: 20130529
  Transmission Date: 20140414
  Serious: No
  Sender: FDA-Public Use
  Company Number: US-PFIZER INC-2013146168

PATIENT
  Age: 51 Year
  Sex: Female
  Weight: 49.9 kg

DRUGS (6)
  1. CHANTIX [Suspect]
     Indication: SMOKING CESSATION THERAPY
     Dosage: 0.5 MG, 1X/DAY
     Route: 048
     Dates: start: 201304, end: 201304
  2. CHANTIX [Suspect]
     Dosage: 0.5 MG, UNK
     Route: 048
     Dates: start: 201304
  3. SYMBICORT [Concomitant]
     Dosage: UNK
  4. XANAX [Concomitant]
     Dosage: 0.5 MG, UNK
  5. PAMELOR [Concomitant]
     Dosage: 10 MG, UNK
  6. VICODIN [Concomitant]
     Dosage: 500 MG, UNK

REACTIONS (2)
  - Nausea [Not Recovered/Not Resolved]
  - Drug ineffective [Unknown]
